FAERS Safety Report 21826077 (Version 1)
Quarter: 2023Q1

REPORT INFORMATION
  Report Type: Report from Study
  Country: US (occurrence: US)
  Receive Date: 20230106
  Receipt Date: 20230106
  Transmission Date: 20230417
  Serious: No
  Sender: FDA-Public Use
  Company Number: US-ABBVIE-4224048

PATIENT
  Sex: Female

DRUGS (2)
  1. SKYRIZI [Suspect]
     Active Substance: RISANKIZUMAB-RZAA
     Indication: Psoriasis
     Dosage: 150 MILLIGRAM, WEEK 0
     Route: 058
     Dates: start: 20221003, end: 20221003
  2. SKYRIZI [Suspect]
     Active Substance: RISANKIZUMAB-RZAA
     Dosage: 150 MILLIGRAM, WEEK 4
     Route: 058
     Dates: start: 20221031, end: 20221031

REACTIONS (3)
  - Erythema [Not Recovered/Not Resolved]
  - Arthritis [Not Recovered/Not Resolved]
  - Pruritus [Not Recovered/Not Resolved]
